FAERS Safety Report 20590596 (Version 1)
Quarter: 2022Q1

REPORT INFORMATION
  Report Type: Other
  Country: US (occurrence: None)
  Receive Date: 20220314
  Receipt Date: 20220314
  Transmission Date: 20220424
  Serious: Yes (Other)
  Sender: FDA-Public Use
  Company Number: US-ROCHE-3044559

PATIENT
  Age: 54 Year
  Sex: Male

DRUGS (4)
  1. COBIMETINIB [Suspect]
     Active Substance: COBIMETINIB
     Indication: Erdheim-Chester disease
     Route: 065
  2. COBIMETINIB [Suspect]
     Active Substance: COBIMETINIB
     Indication: Myelodysplastic syndrome
  3. VEMURAFENIB [Suspect]
     Active Substance: VEMURAFENIB
     Indication: Erdheim-Chester disease
     Route: 065
  4. VEMURAFENIB [Suspect]
     Active Substance: VEMURAFENIB
     Indication: Myelodysplastic syndrome

REACTIONS (1)
  - Neutropenia [Unknown]
